FAERS Safety Report 6087988-0 (Version None)
Quarter: 2009Q1

REPORT INFORMATION
  Report Type: 
  Country: None (occurrence: None)
  Receive Date: 20090223
  Receipt Date: 20090213
  Transmission Date: 20090719
  Serious: Yes (Other)
  Sender: FDA-Public Use
  Company Number: US-ABBOTT-09P-163-0496533-00

PATIENT
  Sex: Female
  Weight: 73.094 kg

DRUGS (5)
  1. HUMIRA [Suspect]
     Indication: RHEUMATOID ARTHRITIS
     Dates: start: 20071212, end: 20080416
  2. HUMIRA [Suspect]
     Dates: start: 20080701, end: 20081229
  3. METHOTREXATE [Concomitant]
     Indication: RHEUMATOID ARTHRITIS
     Dates: end: 20080416
  4. METHOTREXATE [Concomitant]
     Dates: start: 20080701, end: 20081229
  5. MELOXICAM [Concomitant]
     Indication: DRUG USE FOR UNKNOWN INDICATION

REACTIONS (7)
  - B-CELL LYMPHOMA [None]
  - HEAD AND NECK CANCER [None]
  - LOCALISED OEDEMA [None]
  - NEOPLASM MALIGNANT [None]
  - PHARYNGITIS [None]
  - TONSIL CANCER [None]
  - TONSILLITIS [None]
